FAERS Safety Report 10462338 (Version 1)
Quarter: 2014Q3

REPORT INFORMATION
  Report Type: Spontaneous
  Country: US (occurrence: US)
  Receive Date: 20140918
  Receipt Date: 20140918
  Transmission Date: 20150326
  Serious: Yes (Death, Hospitalization, Other)
  Sender: FDA-Public Use
  Company Number: US-WATSON-2014-19869

PATIENT
  Sex: Male

DRUGS (1)
  1. ANDRODERM [Suspect]
     Active Substance: TESTOSTERONE
     Indication: BLOOD TESTOSTERONE DECREASED
     Dosage: UNK
     Route: 062

REACTIONS (4)
  - Emotional distress [Not Recovered/Not Resolved]
  - Social problem [Not Recovered/Not Resolved]
  - Cerebrovascular accident [Fatal]
  - Restlessness [Not Recovered/Not Resolved]
